FAERS Safety Report 5602580-7 (Version None)
Quarter: 2008Q1

REPORT INFORMATION
  Report Type: 
  Country: None (occurrence: None)
  Receive Date: 20080125
  Receipt Date: 20080122
  Transmission Date: 20080703
  Serious: Yes (Hospitalization)
  Sender: FDA-Public Use
  Company Number: FR-WYE-G00929208

PATIENT
  Sex: Male

DRUGS (3)
  1. EFFEXOR [Suspect]
     Route: 048
     Dates: start: 20060101, end: 20080122
  2. ALIMTA [Suspect]
     Indication: MESOTHELIOMA
     Dosage: 1 CYCLE EVERY 3 WK;  CUMULATIVE DOSE TO EVENT: 3.014 CYCLE
     Dates: start: 20071009, end: 20071219
  3. CISPLATIN [Suspect]
     Indication: MESOTHELIOMA
     Dosage: 1 CYCLE EVERY 3 WK;  CUMULATIVE DOSE TO EVENT: 3.014 CYCLE
     Dates: start: 20071009, end: 20071219

REACTIONS (2)
  - ANTI-PLATELET ANTIBODY POSITIVE [None]
  - THROMBOCYTOPENIA [None]
